FAERS Safety Report 20256428 (Version 2)
Quarter: 2022Q1

REPORT INFORMATION
  Report Type: Report from Study
  Country: US (occurrence: US)
  Receive Date: 20211230
  Receipt Date: 20220214
  Transmission Date: 20220423
  Serious: Yes (Hospitalization, Other)
  Sender: FDA-Public Use
  Company Number: US-ABBVIE-21K-163-4214287-00

PATIENT
  Age: 17 Year
  Sex: Male

DRUGS (2)
  1. HUMIRA [Suspect]
     Active Substance: ADALIMUMAB
     Indication: Crohn^s disease
     Route: 058
  2. HUMIRA [Suspect]
     Active Substance: ADALIMUMAB
     Route: 058
     Dates: start: 20211221

REACTIONS (11)
  - Transfusion [Unknown]
  - Bowel movement irregularity [Not Recovered/Not Resolved]
  - Rectal haemorrhage [Recovered/Resolved]
  - Surgical failure [Unknown]
  - Off label use [Unknown]
  - Limb mass [Unknown]
  - Haemorrhage [Unknown]
  - Inflammation [Not Recovered/Not Resolved]
  - Headache [Unknown]
  - Crohn^s disease [Not Recovered/Not Resolved]
  - Injection site pain [Unknown]

NARRATIVE: CASE EVENT DATE: 20211201
